FAERS Safety Report 7824721-3 (Version None)
Quarter: 2011Q4

REPORT INFORMATION
  Report Type: 
  Country: None (occurrence: None)
  Receive Date: 20111019
  Receipt Date: 20111013
  Transmission Date: 20120403
  Serious: Yes (Other)
  Sender: FDA-Public Use
  Company Number: PHEH2011US06865

PATIENT
  Sex: Female
  Weight: 52.154 kg

DRUGS (7)
  1. FIORICET [Concomitant]
     Dosage: UNK UKN, UNK
  2. MULTI-VITAMINS [Concomitant]
     Dosage: UNK UKN, UNK
  3. MUCINEX [Concomitant]
     Dosage: 1200 MG, UNK
  4. GILENYA [Suspect]
     Dosage: 0.5 MG, QD
     Route: 048
  5. VITAMIN D [Concomitant]
     Dosage: UNK UKN, UNK
  6. PROVIGIL [Concomitant]
     Dosage: 100 MG, UNK
  7. DETROL [Concomitant]
     Dosage: 1 MG, UNK

REACTIONS (1)
  - BREAST MASS [None]
